FAERS Safety Report 13600904 (Version 7)
Quarter: 2017Q4

REPORT INFORMATION
  Report Type: Report from Study
  Country: PL (occurrence: PL)
  Receive Date: 20170601
  Receipt Date: 20171123
  Transmission Date: 20180320
  Serious: Yes (Hospitalization)
  Sender: FDA-Public Use
  Company Number: PL-ROCHE-1940860

PATIENT
  Age: 56 Year
  Sex: Female
  Weight: 64 kg

DRUGS (11)
  1. ASPARGIN [Concomitant]
     Active Substance: ASPARTIC ACID
     Route: 048
     Dates: start: 20170320
  2. CLEMASTIN [Concomitant]
     Active Substance: CLEMASTINE
     Route: 042
     Dates: start: 20170525, end: 20170526
  3. PANTOPRAZOLE [Concomitant]
     Active Substance: PANTOPRAZOLE
     Route: 042
     Dates: start: 20170525, end: 20170527
  4. PARACETAMOL [Concomitant]
     Active Substance: ACETAMINOPHEN
     Route: 042
     Dates: start: 20170525, end: 20170526
  5. DEXAVEN [Concomitant]
     Active Substance: DEXAMETHASONE
     Route: 042
     Dates: start: 20170525, end: 20170527
  6. FOLIC ACID. [Concomitant]
     Active Substance: FOLIC ACID
     Route: 048
     Dates: start: 20170101
  7. CLEXANE [Concomitant]
     Active Substance: ENOXAPARIN SODIUM
     Route: 058
     Dates: start: 20170525, end: 20170527
  8. PANTOPRAZOLE [Concomitant]
     Active Substance: PANTOPRAZOLE
     Route: 042
     Dates: start: 20170527, end: 20170530
  9. ATEZOLIZUMAB. [Suspect]
     Active Substance: ATEZOLIZUMAB
     Indication: RENAL CELL CARCINOMA
     Dosage: MOST RECENT DOSE PROIER TO SAE: 10/MAY/2017 AT 13.00
     Route: 042
     Dates: start: 20170510
  10. AUGMENTIN [Concomitant]
     Active Substance: AMOXICILLIN\CLAVULANATE POTASSIUM
     Route: 042
     Dates: start: 20170525, end: 20170526
  11. KETOPROFEN. [Concomitant]
     Active Substance: KETOPROFEN
     Route: 042
     Dates: start: 20170525, end: 20170526

REACTIONS (2)
  - Hepatitis [Recovering/Resolving]
  - Arthritis [Recovering/Resolving]

NARRATIVE: CASE EVENT DATE: 20170521
